FAERS Safety Report 5881067-0 (Version None)
Quarter: 2008Q3

REPORT INFORMATION
  Report Type: 
  Country: None (occurrence: None)
  Receive Date: 20080912
  Receipt Date: 20080617
  Transmission Date: 20090109
  Serious: No
  Sender: FDA-Public Use
  Company Number: US-ABBOTT-08P-163-0458365-00

PATIENT
  Sex: Female
  Weight: 68.1 kg

DRUGS (3)
  1. HUMIRA [Suspect]
     Indication: CROHN'S DISEASE
     Route: 058
     Dates: start: 20070401
  2. MESALAMINE [Concomitant]
     Indication: CROHN'S DISEASE
     Route: 048
  3. PREDNISONE TAB [Concomitant]
     Indication: CROHN'S DISEASE
     Dosage: 20MG TO 40MG IS ORDERED
     Route: 048

REACTIONS (3)
  - HYPERSENSITIVITY [None]
  - SWELLING [None]
  - URTICARIA [None]
